FAERS Safety Report 9492100 (Version 1)
Quarter: 2013Q3

REPORT INFORMATION
  Report Type: Spontaneous
  Country: DE (occurrence: DE)
  Receive Date: 20130830
  Receipt Date: 20130830
  Transmission Date: 20140515
  Serious: Yes (Death, Other)
  Sender: FDA-Public Use
  Company Number: DE-JNJFOC-20130815971

PATIENT
  Sex: 0

DRUGS (7)
  1. ABCIXIMAB [Suspect]
     Indication: PERCUTANEOUS CORONARY INTERVENTION
     Dosage: BOLUS DOSE
     Route: 042
  2. ABCIXIMAB [Suspect]
     Indication: PERCUTANEOUS CORONARY INTERVENTION
     Dosage: 12 HOURS INFUSION (MAXIMUM OF 10 MCG/MINUTE)
     Route: 042
  3. UNFRACTIONATED HEPARIN [Suspect]
     Indication: PERCUTANEOUS CORONARY INTERVENTION
     Dosage: 70 UNITS/KG
     Route: 065
  4. ASPIRIN [Concomitant]
     Indication: THROMBOSIS PROPHYLAXIS
     Dosage: 325-500 MG BEFORE RANDOMIZATION AND 80-325 POST-PROCEDURAL
     Route: 065
  5. ASPIRIN [Concomitant]
     Indication: ACUTE MYOCARDIAL INFARCTION
     Dosage: 325-500 MG BEFORE RANDOMIZATION AND 80-325 POST-PROCEDURAL
     Route: 065
  6. CLOPIDOGREL [Concomitant]
     Indication: THROMBOSIS PROPHYLAXIS
     Dosage: 600 MG BEFORE RANDOMIZATION AND UNKNOWN DOSE POST-PROCEDURAL
     Route: 065
  7. CLOPIDOGREL [Concomitant]
     Indication: ACUTE MYOCARDIAL INFARCTION
     Dosage: 600 MG BEFORE RANDOMIZATION AND UNKNOWN DOSE POST-PROCEDURAL
     Route: 065

REACTIONS (4)
  - Death [Fatal]
  - Vascular operation [Unknown]
  - Myocardial infarction [Unknown]
  - Thrombosis in device [Unknown]
